FAERS Safety Report 15525270 (Version 3)
Quarter: 2018Q4

REPORT INFORMATION
  Report Type: Spontaneous
  Country: US (occurrence: US)
  Receive Date: 20181018
  Receipt Date: 20181203
  Transmission Date: 20190205
  Serious: Yes (Other)
  Sender: FDA-Public Use
  Company Number: US-GLAXOSMITHKLINE-US2018185672

PATIENT
  Age: 56 Year
  Sex: Female

DRUGS (10)
  1. NYSTATIN. [Suspect]
     Active Substance: NYSTATIN
  2. TRAMADOL. [Suspect]
     Active Substance: TRAMADOL
  3. NUCALA [Suspect]
     Active Substance: MEPOLIZUMAB
     Indication: EOSINOPHILIC GRANULOMATOSIS WITH POLYANGIITIS
     Dosage: 300 MG, UNK
     Route: 058
     Dates: start: 201810
  4. ATIVAN [Suspect]
     Active Substance: LORAZEPAM
  5. SHINGRIX [Suspect]
     Active Substance: RECOMBINANT VARICELLA ZOSTER VIRUS (VZV) GLYCOPROTEIN E
     Indication: PROPHYLAXIS
  6. OMEPRAZOLE. [Suspect]
     Active Substance: OMEPRAZOLE
  7. XOPENEX [Suspect]
     Active Substance: LEVALBUTEROL HYDROCHLORIDE
  8. VALACYCLOVIR [Suspect]
     Active Substance: VALACYCLOVIR HYDROCHLORIDE
  9. IMURAN [Suspect]
     Active Substance: AZATHIOPRINE
  10. PREDNISONE. [Suspect]
     Active Substance: PREDNISONE

REACTIONS (7)
  - Hepatic enzyme abnormal [Unknown]
  - Liver function test increased [Unknown]
  - Nausea [Unknown]
  - Leukopenia [Unknown]
  - White blood cell count abnormal [Unknown]
  - Sinusitis [Unknown]
  - Influenza like illness [Unknown]

NARRATIVE: CASE EVENT DATE: 201810
